FAERS Safety Report 7435301-6 (Version None)
Quarter: 2011Q2

REPORT INFORMATION
  Report Type: 
  Country: None (occurrence: None)
  Receive Date: 20110425
  Receipt Date: 20110421
  Transmission Date: 20111010
  Serious: Yes (Death, Life-Threatening, Hospitalization, Other)
  Sender: FDA-Public Use
  Company Number: JO-ASTRAZENECA-2011SE22768

PATIENT
  Age: 40 Year
  Sex: Female

DRUGS (6)
  1. ANTIBIOTICS [Concomitant]
     Indication: CELLULITIS
     Route: 048
  2. ANTIBIOTICS [Concomitant]
     Indication: PHARYNGITIS
     Route: 048
  3. QUETIAPINE [Suspect]
     Indication: MAJOR DEPRESSION
     Route: 048
  4. LAMOTRIGINE [Suspect]
     Indication: MAJOR DEPRESSION
  5. VENLAFAXINE HCL [Suspect]
     Indication: MAJOR DEPRESSION
  6. MIRTAZAPINE [Suspect]
     Indication: MAJOR DEPRESSION

REACTIONS (4)
  - SEPTIC SHOCK [None]
  - CONVULSION [None]
  - CARDIAC ARREST [None]
  - NEUTROPENIA [None]
